FAERS Safety Report 10348377 (Version 3)
Quarter: 2014Q3

REPORT INFORMATION
  Report Type: Spontaneous
  Country: US (occurrence: PL)
  Receive Date: 20140729
  Receipt Date: 20140811
  Transmission Date: 20150326
  Serious: Yes (Life-Threatening, Hospitalization)
  Sender: FDA-Public Use
  Company Number: PL-FRI-1000069401

PATIENT
  Age: 72 Year
  Sex: Male
  Weight: 66 kg

DRUGS (2)
  1. ROFLUMILAST [Suspect]
     Active Substance: ROFLUMILAST
     Dosage: 500 MCG
     Route: 048
     Dates: start: 20140710
  2. ROFLUMILAST [Suspect]
     Active Substance: ROFLUMILAST
     Dosage: 500 MCG
     Route: 048
     Dates: start: 20120511, end: 20140619

REACTIONS (1)
  - Pneumonia [Recovering/Resolving]

NARRATIVE: CASE EVENT DATE: 20140619
